FAERS Safety Report 18394548 (Version 1)
Quarter: 2020Q4

REPORT INFORMATION
  Report Type: Spontaneous
  Country: FR (occurrence: FR)
  Receive Date: 20201017
  Receipt Date: 20201017
  Transmission Date: 20210114
  Serious: Yes (Hospitalization)
  Sender: FDA-Public Use
  Company Number: NVSC2020FR276175

PATIENT
  Age: 79 Year
  Sex: Female
  Weight: 51 kg

DRUGS (2)
  1. ANAFRANIL [Suspect]
     Active Substance: CLOMIPRAMINE HYDROCHLORIDE
     Indication: DEPRESSION
     Dosage: 25 MG
     Route: 048
     Dates: start: 2017
  2. PRIMPERAN [Suspect]
     Active Substance: METOCLOPRAMIDE HYDROCHLORIDE
     Indication: NAUSEA
     Dosage: 10 MG, Q8H
     Route: 042
     Dates: start: 20200918, end: 20200919

REACTIONS (1)
  - Hyponatraemia [Recovered/Resolved]

NARRATIVE: CASE EVENT DATE: 20200921
